FAERS Safety Report 8536723-2 (Version None)
Quarter: 2012Q3

REPORT INFORMATION
  Report Type: 
  Country: None (occurrence: None)
  Receive Date: 20120718
  Receipt Date: 20120718
  Transmission Date: 20120928
  Serious: Yes (Hospitalization)
  Sender: FDA-Public Use
  Company Number: None

PATIENT
  Age: 33 Year
  Sex: Male
  Weight: 90.9 kg

DRUGS (2)
  1. GABAPENTIN [Suspect]
     Indication: POST-TRAUMATIC STRESS DISORDER
     Dosage: 400 MG TID PO
     Route: 048
     Dates: start: 20120410, end: 20120508
  2. GABAPENTIN [Suspect]
     Indication: ANXIETY
     Dosage: 400 MG TID PO
     Route: 048
     Dates: start: 20120410, end: 20120508

REACTIONS (5)
  - INCORRECT DOSE ADMINISTERED [None]
  - DRUG ADMINISTRATION ERROR [None]
  - LOSS OF CONSCIOUSNESS [None]
  - CONFUSIONAL STATE [None]
  - AGITATION [None]
